FAERS Safety Report 24596261 (Version 1)
Quarter: 2024Q4

REPORT INFORMATION
  Report Type: Report from Study
  Country: US (occurrence: US)
  Receive Date: 20241110
  Receipt Date: 20241110
  Transmission Date: 20250114
  Serious: Yes (Other)
  Sender: ALEXION PHARMACEUTICALS
  Company Number: US-AstraZeneca-CH-00733926A

PATIENT

DRUGS (4)
  1. TICAGRELOR [Suspect]
     Active Substance: TICAGRELOR
     Dosage: UNK
  2. TICAGRELOR [Suspect]
     Active Substance: TICAGRELOR
     Dosage: UNK
  3. TICAGRELOR [Suspect]
     Active Substance: TICAGRELOR
     Dosage: UNK
  4. TICAGRELOR [Suspect]
     Active Substance: TICAGRELOR
     Dosage: UNK

REACTIONS (1)
  - Diabetes mellitus [Unknown]
